FAERS Safety Report 4606257-6 (Version None)
Quarter: 2005Q1

REPORT INFORMATION
  Report Type: 
  Country: None (occurrence: None)
  Receive Date: 20050311
  Receipt Date: 20040405
  Transmission Date: 20050727
  Serious: Yes (Hospitalization)
  Sender: FDA-Public Use
  Company Number: JP-ABBOTT-04P-087-0256490-00

PATIENT
  Sex: Male

DRUGS (27)
  1. KALETRA [Suspect]
     Indication: HIV INFECTION
     Route: 048
     Dates: start: 20020513, end: 20020715
  2. KALETRA [Suspect]
     Route: 048
     Dates: start: 20030409, end: 20030409
  3. NORVIR [Suspect]
     Indication: HIV INFECTION
     Route: 048
     Dates: start: 20010212, end: 20010322
  4. NORVIR [Suspect]
     Route: 048
     Dates: start: 20010208, end: 20010311
  5. ZIDOVUDINE [Suspect]
     Indication: HIV INFECTION
     Route: 048
     Dates: start: 20010208, end: 20010405
  6. ABACAVIR [Suspect]
     Indication: HIV INFECTION
     Route: 048
     Dates: start: 20010406, end: 20030408
  7. NELFINAVIR [Suspect]
     Indication: HIV INFECTION
     Route: 048
     Dates: start: 20030425
  8. SAQUINAVIR [Suspect]
     Indication: HIV INFECTION
     Route: 048
     Dates: start: 20010208, end: 20010322
  9. EFAVIRENZ [Suspect]
     Indication: HIV INFECTION
     Route: 048
     Dates: start: 20010323, end: 20020512
  10. EFAVIRENZ [Suspect]
     Route: 048
     Dates: start: 20030409, end: 20030409
  11. EFAVIRENZ [Suspect]
     Route: 048
     Dates: start: 20030425
  12. BACTRIM [Suspect]
     Indication: INFECTION PROPHYLAXIS
     Dates: start: 20010202, end: 20010406
  13. BACTRIM [Suspect]
     Dates: start: 20001206, end: 20001211
  14. BACTRIM [Suspect]
     Dates: start: 20001212, end: 20010125
  15. BACTRIM [Suspect]
     Dates: start: 20030403, end: 20030708
  16. LAMIVUDINE [Concomitant]
     Indication: HIV INFECTION
     Route: 048
     Dates: start: 20010208, end: 20030408
  17. LAMIVUDINE [Concomitant]
     Dates: start: 20020514
  18. ABACAVIR SULFATE [Concomitant]
     Indication: HIV INFECTION
     Route: 048
     Dates: start: 20020514
  19. DIDANOSINE [Concomitant]
     Indication: HIV INFECTION
     Route: 048
     Dates: start: 20020716, end: 20030408
  20. TENOFOVIR [Concomitant]
     Indication: HIV INFECTION
     Route: 048
     Dates: start: 20030409, end: 20030409
  21. TENOFOVIR [Concomitant]
     Route: 048
     Dates: start: 20030425
  22. CONCENTRATED GLYCERIN FRUCTOSE [Concomitant]
     Indication: SUBARACHNOID HAEMORRHAGE
     Route: 042
     Dates: start: 20001123, end: 20001227
  23. GABEXATE MESILATE [Concomitant]
     Indication: PANCREATITIS CHRONIC
     Route: 042
     Dates: start: 20010125, end: 20010128
  24. NAFAMOSTAT MESILATE [Concomitant]
     Indication: PANCREATITIS CHRONIC
     Route: 042
     Dates: start: 20010208, end: 20010219
  25. NAFAMOSTAT MESILATE [Concomitant]
     Route: 042
     Dates: start: 20010220, end: 20010225
  26. DIGESTIVE ENZYME PREPARATIONS [Concomitant]
     Indication: PANCREATITIS CHRONIC
     Route: 048
     Dates: start: 20010226, end: 20010313
  27. DIGESTIVE ENZYME PREPARATIONS [Concomitant]
     Route: 048
     Dates: start: 20010314

REACTIONS (6)
  - ARRHYTHMIA [None]
  - BRADYCARDIA [None]
  - DIARRHOEA [None]
  - NAUSEA [None]
  - RETINAL VEIN OCCLUSION [None]
  - VOMITING [None]
